FAERS Safety Report 14730757 (Version 2)
Quarter: 2018Q2

REPORT INFORMATION
  Report Type: Spontaneous
  Country: BR (occurrence: BR)
  Receive Date: 20180406
  Receipt Date: 20180409
  Transmission Date: 20180711
  Serious: No
  Sender: FDA-Public Use
  Company Number: BR-ELI_LILLY_AND_COMPANY-BR201803012396

PATIENT
  Sex: Female

DRUGS (1)
  1. TRULICITY [Suspect]
     Active Substance: DULAGLUTIDE
     Indication: PRODUCT USED FOR UNKNOWN INDICATION
     Dosage: UNK, UNKNOWN
     Route: 065
     Dates: start: 201803

REACTIONS (9)
  - Haematochezia [Unknown]
  - Abdominal pain upper [Unknown]
  - Chest pain [Unknown]
  - Malaise [Unknown]
  - Nausea [Unknown]
  - Vomiting [Unknown]
  - Head discomfort [Unknown]
  - Swelling [Unknown]
  - Eructation [Unknown]
